FAERS Safety Report 4988053-3 (Version None)
Quarter: 2006Q2

REPORT INFORMATION
  Report Type: 
  Country: None (occurrence: None)
  Receive Date: 20060424
  Receipt Date: 20060413
  Transmission Date: 20061013
  Serious: Yes (Hospitalization)
  Sender: FDA-Public Use
  Company Number: 2006-04-0952

PATIENT
  Age: 82 Year
  Sex: Female

DRUGS (14)
  1. INTEGRILIN [Suspect]
     Indication: ACUTE CORONARY SYNDROME
     Dosage: INTRAVENOUS
     Route: 042
     Dates: start: 20060310, end: 20060310
  2. DIANTALVIC ORAL [Suspect]
     Dosage: 6 UNITS/DAY ORAL
     Route: 048
     Dates: start: 20060310, end: 20060313
  3. PANTOPRAZOL ORAL [Suspect]
     Dosage: 20 MG DAILY ORAL
     Route: 048
     Dates: start: 20060309, end: 20060313
  4. FORMOTEROL [Concomitant]
  5. ENOXAPARIN SODIUM [Concomitant]
  6. LYSINE ACETYLSALICYLATE [Concomitant]
  7. PACLITAXEL [Concomitant]
  8. HEXABRIX [Concomitant]
  9. PLAVIX [Concomitant]
  10. DIAMICRON [Concomitant]
  11. COVERSYL [Concomitant]
  12. PRAVASTATIN [Concomitant]
  13. ISOPTIN [Concomitant]
  14. PULMICORT [Concomitant]

REACTIONS (2)
  - ACUTE GENERALISED EXANTHEMATOUS PUSTULOSIS [None]
  - THROMBOSIS [None]
